FAERS Safety Report 11547594 (Version 1)
Quarter: 2015Q3

REPORT INFORMATION
  Report Type: Spontaneous
  Country: US (occurrence: US)
  Receive Date: 20150903
  Receipt Date: 20150903
  Transmission Date: 20151125
  Serious: No
  Sender: FDA-Public Use
  Company Number: US-ELI_LILLY_AND_COMPANY-US201103001998

PATIENT
  Age: 66 Year
  Sex: Male

DRUGS (3)
  1. BYETTA [Concomitant]
     Active Substance: EXENATIDE
  2. HUMALOG MIX50/50 [Suspect]
     Active Substance: INSULIN LISPRO
     Indication: DIABETES MELLITUS
     Dosage: 18 U, EACH MORNING
     Dates: start: 200909
  3. HUMALOG MIX50/50 [Suspect]
     Active Substance: INSULIN LISPRO
     Dosage: 24 U, EACH EVENING
     Dates: start: 200909

REACTIONS (1)
  - Injection site discolouration [Unknown]

NARRATIVE: CASE EVENT DATE: 201101
